FAERS Safety Report 23415931 (Version 1)
Quarter: 2024Q1

REPORT INFORMATION
  Report Type: Spontaneous
  Country: US (occurrence: US)
  Receive Date: 20240118
  Receipt Date: 20240118
  Transmission Date: 20240410
  Serious: Yes (Life-Threatening, Hospitalization, Disabling, Other)
  Sender: FDA-Public Use
  Company Number: US-SUN PHARMACEUTICAL INDUSTRIES LTD-2024R1-427149

PATIENT
  Age: 72 Year
  Sex: Female

DRUGS (4)
  1. DULOXETINE [Interacting]
     Active Substance: DULOXETINE
     Indication: Depressive symptom
     Dosage: UNK (60 MG)
     Route: 065
  2. MIRTAZAPINE [Interacting]
     Active Substance: MIRTAZAPINE
     Indication: Depressive symptom
     Dosage: UNK (30MG, QHS)
     Route: 065
  3. FENTANYL [Interacting]
     Active Substance: FENTANYL\FENTANYL CITRATE
     Indication: Product used for unknown indication
     Dosage: UNK
     Route: 048
  4. COCAINE [Interacting]
     Active Substance: COCAINE
     Indication: Product used for unknown indication
     Dosage: UNK
     Route: 048

REACTIONS (10)
  - Drug interaction [Unknown]
  - Respiratory depression [Unknown]
  - Electrocardiogram QT prolonged [Unknown]
  - Bradycardia [Unknown]
  - Hypotension [Unknown]
  - Respiratory alkalosis [Unknown]
  - Metabolic alkalosis [Unknown]
  - Coma scale abnormal [Unknown]
  - Miosis [Unknown]
  - Drug screen positive [Unknown]
